FAERS Safety Report 11097117 (Version 2)
Quarter: 2015Q2

REPORT INFORMATION
  Report Type: Spontaneous
  Country: RS (occurrence: RS)
  Receive Date: 20150507
  Receipt Date: 20150515
  Transmission Date: 20150821
  Serious: Yes (Hospitalization)
  Sender: FDA-Public Use
  Company Number: RS-PFIZER INC-2015154412

PATIENT
  Age: 56 Year
  Sex: Male

DRUGS (2)
  1. TRITACE [Suspect]
     Active Substance: RAMIPRIL
     Indication: ESSENTIAL HYPERTENSION
     Dosage: 5 MG, DAILY
     Route: 048
     Dates: start: 20150418, end: 20150420
  2. VIVACE [Concomitant]
     Dosage: 5 MG, 1X/DAY

REACTIONS (3)
  - Hypoaesthesia oral [Not Recovered/Not Resolved]
  - Speech disorder [Not Recovered/Not Resolved]
  - Tongue oedema [Recovering/Resolving]

NARRATIVE: CASE EVENT DATE: 20150420
